FAERS Safety Report 8169452-8 (Version None)
Quarter: 2012Q1

REPORT INFORMATION
  Report Type: 
  Country: None (occurrence: None)
  Receive Date: 20120222
  Receipt Date: 20120207
  Transmission Date: 20120608
  Serious: Yes (Death)
  Sender: FDA-Public Use
  Company Number: FK201200367

PATIENT
  Age: 87 Year
  Sex: Female

DRUGS (2)
  1. CARBOPLATIN [Suspect]
     Indication: NEUROENDOCRINE CARCINOMA OF THE SKIN
     Dosage: AUC 5 ON DAY 1
  2. ETOPOSIDE [Suspect]
     Indication: NEUROENDOCRINE CARCINOMA OF THE SKIN
     Dosage: 75 MG/M2, ON DAY 1-3

REACTIONS (6)
  - PYREXIA [None]
  - RENAL FAILURE ACUTE [None]
  - PANCYTOPENIA [None]
  - TUMOUR LYSIS SYNDROME [None]
  - DYSPNOEA [None]
  - HAEMATOTOXICITY [None]
